FAERS Safety Report 11840809 (Version 2)
Quarter: 2015Q4

REPORT INFORMATION
  Report Type: Spontaneous
  Country: CN (occurrence: CN)
  Receive Date: 20151216
  Receipt Date: 20151228
  Transmission Date: 20160305
  Serious: Yes (Death)
  Sender: FDA-Public Use
  Company Number: CN-OTSUKA-2015_016795

PATIENT
  Age: 65 Year
  Sex: Male

DRUGS (5)
  1. DACOGEN [Suspect]
     Active Substance: DECITABINE
     Dosage: UNK
     Route: 042
     Dates: end: 20141130
  2. DACOGEN [Suspect]
     Active Substance: DECITABINE
     Dosage: 35.2 MG, 1 IN 1 DAY
     Route: 042
     Dates: start: 20140812, end: 20140816
  3. DACOGEN [Suspect]
     Active Substance: DECITABINE
     Dosage: 36.6 MG, 1 IN 1 DAY
     Route: 042
     Dates: start: 20140913, end: 20140917
  4. DACOGEN [Suspect]
     Active Substance: DECITABINE
     Dosage: 35.4 MG, 1 IN 1 DAY
     Route: 042
     Dates: start: 20140712, end: 20140721
  5. DACOGEN [Suspect]
     Active Substance: DECITABINE
     Indication: ACUTE MYELOID LEUKAEMIA
     Dosage: 36.4 MG, 1 IN 1 DAY
     Route: 042
     Dates: start: 20140613, end: 20140622

REACTIONS (2)
  - Acute myeloid leukaemia [Fatal]
  - Cardiac disorder [Fatal]

NARRATIVE: CASE EVENT DATE: 20150721
